FAERS Safety Report 15959828 (Version 1)
Quarter: 2019Q1

REPORT INFORMATION
  Report Type: Spontaneous
  Country: US (occurrence: US)
  Receive Date: 20190214
  Receipt Date: 20190214
  Transmission Date: 20190417
  Serious: No
  Sender: FDA-Public Use
  Company Number: US-ROCHE-2221209

PATIENT
  Sex: Female
  Weight: 96.25 kg

DRUGS (1)
  1. ALECENSA [Suspect]
     Active Substance: ALECTINIB HYDROCHLORIDE
     Indication: PRODUCT USED FOR UNKNOWN INDICATION
     Route: 065
     Dates: start: 20180324

REACTIONS (4)
  - Blood creatinine increased [Unknown]
  - Hiatus hernia [Unknown]
  - Glomerular filtration rate decreased [Unknown]
  - Cholelithiasis [Unknown]
